FAERS Safety Report 10601828 (Version 1)
Quarter: 2014Q4

REPORT INFORMATION
  Report Type: Spontaneous
  Country: DE (occurrence: DE)
  Receive Date: 20141124
  Receipt Date: 20141124
  Transmission Date: 20150529
  Serious: Yes (Death, Congenital Anomaly, Other)
  Sender: FDA-Public Use
  Company Number: GXKR2014DE004289

PATIENT

DRUGS (1)
  1. METFORMIN [Suspect]
     Active Substance: METFORMIN HYDROCHLORIDE
     Indication: INSULIN RESISTANCE
     Dosage: 850 [MG/D ]
     Route: 064

REACTIONS (9)
  - Death neonatal [Fatal]
  - Dysmorphism [Fatal]
  - Coarctation of the aorta [Fatal]
  - Pulmonary vein stenosis [Fatal]
  - Hepatosplenomegaly neonatal [Fatal]
  - Pulmonary hypertension [Fatal]
  - Cerebral haemorrhage [Fatal]
  - Small for dates baby [Fatal]
  - Multiple cardiac defects [Fatal]

NARRATIVE: CASE EVENT DATE: 20080306
